FAERS Safety Report 14093251 (Version 1)
Quarter: 2017Q4

REPORT INFORMATION
  Report Type: Not Available
  Country: None (occurrence: US)
  Receive Date: 20171016
  Receipt Date: 20171016
  Transmission Date: 20180321
  Serious: No
  Sender: FDA-Public Use
  Company Number: US-AKORN-68123

PATIENT

DRUGS (1)
  1. ADENOSINE INJECTION 3 MG/ML, USP [Suspect]
     Active Substance: ADENOSINE

REACTIONS (1)
  - Drug ineffective [Unknown]
